FAERS Safety Report 7537040-X (Version None)
Quarter: 2011Q2

REPORT INFORMATION
  Report Type: 
  Country: None (occurrence: None)
  Receive Date: 20110609
  Receipt Date: 20110527
  Transmission Date: 20111010
  Serious: Yes (Hospitalization)
  Sender: FDA-Public Use
  Company Number: PHHY2011US25850

PATIENT
  Age: 57 Year
  Sex: Female

DRUGS (8)
  1. VITAMIN D [Concomitant]
  2. ACTEMRA [Suspect]
  3. SYNTHROID [Concomitant]
  4. MOBIC [Concomitant]
  5. NEXIUM [Concomitant]
  6. METHOTREXATE [Concomitant]
  7. RECLAST [Suspect]
     Indication: OSTEOPOROSIS
     Dosage: 5 MG
     Route: 042
     Dates: start: 20110302
  8. CALCIUM CARBONATE [Concomitant]

REACTIONS (12)
  - DEHYDRATION [None]
  - ARTHRALGIA [None]
  - HEADACHE [None]
  - WHITE BLOOD CELL COUNT DECREASED [None]
  - DIARRHOEA [None]
  - MYALGIA [None]
  - NECK PAIN [None]
  - SCIATICA [None]
  - MOVEMENT DISORDER [None]
  - CHILLS [None]
  - VOMITING [None]
  - INFLUENZA [None]
